FAERS Safety Report 25804277 (Version 2)
Quarter: 2025Q3

REPORT INFORMATION
  Report Type: Report from Study
  Country: US (occurrence: US)
  Receive Date: 20250915
  Receipt Date: 20250925
  Transmission Date: 20251020
  Serious: No
  Sender: MALLINCKRODT
  Company Number: US-MALLINCKRODT-MNK202505156

PATIENT
  Age: 54 Year
  Sex: Female

DRUGS (1)
  1. CORTICOTROPIN [Suspect]
     Active Substance: CORTICOTROPIN
     Indication: Rheumatoid arthritis
     Route: 058
     Dates: start: 20250801

REACTIONS (9)
  - Blood glucose decreased [Recovered/Resolved]
  - Nausea [Unknown]
  - Confusional state [Unknown]
  - Fall [Unknown]
  - Feeling abnormal [Unknown]
  - Blood glucose increased [Recovered/Resolved]
  - Blood pressure increased [Recovered/Resolved]
  - Peripheral swelling [Unknown]
  - Bed bug infestation [Unknown]

NARRATIVE: CASE EVENT DATE: 20250101
